FAERS Safety Report 17978527 (Version 1)
Quarter: 2020Q3

REPORT INFORMATION
  Report Type: Spontaneous
  Country: IL (occurrence: IL)
  Receive Date: 20200703
  Receipt Date: 20200703
  Transmission Date: 20201103
  Serious: Yes (Hospitalization, Other)
  Sender: FDA-Public Use
  Company Number: IL-MICRO LABS LIMITED-ML2020-01916

PATIENT

DRUGS (1)
  1. SIMVASTATIN. [Suspect]
     Active Substance: SIMVASTATIN
     Dosage: FOR MORE THAN 20 YEARS

REACTIONS (1)
  - Osteonecrosis of jaw [Not Recovered/Not Resolved]
